FAERS Safety Report 4797391-9 (Version None)
Quarter: 2005Q4

REPORT INFORMATION
  Report Type: 
  Country: None (occurrence: None)
  Receive Date: 20051013
  Receipt Date: 20051004
  Transmission Date: 20060501
  Serious: Yes (Death)
  Sender: FDA-Public Use
  Company Number: US-JNJFOC-20050901945

PATIENT
  Age: 43 Year
  Sex: Female

DRUGS (5)
  1. ACETAMINOPHEN/OXYCODONE [Suspect]
     Indication: DRUG USE FOR UNKNOWN INDICATION
     Route: 048
  2. ACETAMINOPHEN AND BUTALBITAL AND CAFFEINE [Suspect]
  3. ACETAMINOPHEN AND BUTALBITAL AND CAFFEINE [Suspect]
  4. ACETAMINOPHEN AND BUTALBITAL AND CAFFEINE [Suspect]
     Indication: DRUG USE FOR UNKNOWN INDICATION
  5. ETHANOL [Suspect]
     Indication: DRUG USE FOR UNKNOWN INDICATION

REACTIONS (8)
  - COMA [None]
  - COMPLETED SUICIDE [None]
  - DISSEMINATED INTRAVASCULAR COAGULATION [None]
  - INTENTIONAL DRUG MISUSE [None]
  - MULTI-ORGAN FAILURE [None]
  - MULTIPLE DRUG OVERDOSE [None]
  - PYREXIA [None]
  - TACHYPNOEA [None]
